FAERS Safety Report 7949711-1 (Version None)
Quarter: 2011Q4

REPORT INFORMATION
  Report Type: 
  Country: None (occurrence: None)
  Receive Date: 20111130
  Receipt Date: 20111121
  Transmission Date: 20120403
  Serious: Yes (Other)
  Sender: FDA-Public Use
  Company Number: PHHY2011FR104304

PATIENT
  Age: 39 Year
  Sex: Female

DRUGS (5)
  1. CORTICOSTEROIDS [Suspect]
     Indication: HYPOTENSION
     Route: 042
  2. PREDNISONE TAB [Suspect]
     Dosage: 10 MG, QD
  3. PREDNISONE TAB [Suspect]
     Dosage: 02 BOLUS
     Route: 042
  4. PREDNISONE TAB [Suspect]
     Dosage: 1 MG/KG, QD
  5. PREDNISONE TAB [Suspect]
     Dosage: 30 MG, QD

REACTIONS (20)
  - PALPITATIONS [None]
  - PYREXIA [None]
  - BASEDOW'S DISEASE [None]
  - ARTHRALGIA [None]
  - IRRITABILITY [None]
  - GOITRE [None]
  - TACHYCARDIA [None]
  - ROSEOLOVIRUS TEST POSITIVE [None]
  - ASTHENIA [None]
  - SKIN DISORDER [None]
  - MYALGIA [None]
  - DECREASED APPETITE [None]
  - MOTOR DYSFUNCTION [None]
  - CYTOLYTIC HEPATITIS [None]
  - AMENORRHOEA [None]
  - CHILLS [None]
  - DRUG RASH WITH EOSINOPHILIA AND SYSTEMIC SYMPTOMS [None]
  - RENAL DISORDER [None]
  - HYPOTENSION [None]
  - HOT FLUSH [None]
